FAERS Safety Report 24309252 (Version 2)
Quarter: 2024Q4

REPORT INFORMATION
  Report Type: Spontaneous
  Country: JP (occurrence: JP)
  Receive Date: 20240911
  Receipt Date: 20241211
  Transmission Date: 20250115
  Serious: Yes (Other)
  Sender: EISAI
  Company Number: JP-Eisai-202407132_LEN-RCC_P_1

PATIENT
  Age: 54 Year
  Sex: Male

DRUGS (29)
  1. LENVATINIB [Suspect]
     Active Substance: LENVATINIB
     Indication: Renal cell carcinoma
     Route: 048
     Dates: start: 20230828, end: 20240904
  2. LENVATINIB [Suspect]
     Active Substance: LENVATINIB
     Route: 048
     Dates: start: 20230907, end: 20230910
  3. LENVATINIB [Suspect]
     Active Substance: LENVATINIB
     Route: 048
     Dates: start: 20231002, end: 20231008
  4. LENVATINIB [Suspect]
     Active Substance: LENVATINIB
     Dosage: MEDICATION ON DIALYSIS DAY
     Route: 048
     Dates: start: 20231011, end: 20240624
  5. DIFLUPREDNATE [Concomitant]
     Active Substance: DIFLUPREDNATE
     Indication: Product used for unknown indication
  6. PEMBROLIZUMAB [Concomitant]
     Active Substance: PEMBROLIZUMAB
     Indication: Renal cell carcinoma
     Dosage: UNKNOWN DOSE AND FREQUENCY
     Route: 042
     Dates: start: 20230828, end: 20240624
  7. CLOBETASOL [Concomitant]
     Active Substance: CLOBETASOL
     Indication: Product used for unknown indication
     Dosage: DOSE UNKNOWN
  8. ZOLPIDEM TARTRATE [Concomitant]
     Active Substance: ZOLPIDEM TARTRATE
     Indication: Product used for unknown indication
     Route: 048
  9. CALONAL [Concomitant]
     Active Substance: ACETAMINOPHEN
     Indication: Pyrexia
     Route: 048
  10. SENNOSIDES [Concomitant]
     Active Substance: SENNOSIDES
     Indication: Constipation
     Dosage: AS NEEDED, WHEN CONSTIPATION OCCURRED
     Route: 048
  11. ETIZOLAM [Concomitant]
     Active Substance: ETIZOLAM
     Indication: Palpitations
     Dosage: AS NEEDED, DURING PALPITATIONS
     Route: 048
  12. FLUOROMETHOLONE [Concomitant]
     Active Substance: FLUOROMETHOLONE
     Indication: Product used for unknown indication
  13. PIRENOXINE [Concomitant]
     Active Substance: PIRENOXINE
     Indication: Product used for unknown indication
     Dosage: DOSE UNKNOWN
  14. OFLOXACIN [Concomitant]
     Active Substance: OFLOXACIN
     Indication: Product used for unknown indication
     Dosage: DOSE UNKNOWN
  15. EPINASTINE HYDROCHLORIDE [Concomitant]
     Active Substance: EPINASTINE HYDROCHLORIDE
     Indication: Product used for unknown indication
     Dosage: DOSE UNKNOWN
  16. ISOSORBIDE MONONITRATE [Concomitant]
     Active Substance: ISOSORBIDE MONONITRATE
     Indication: Product used for unknown indication
     Dosage: IMMEDIATELY AFTER BREAKFAST AND DINNER
     Route: 048
  17. AZILSARTAN KAMEDOXOMIL [Concomitant]
     Active Substance: AZILSARTAN KAMEDOXOMIL
     Dosage: IMMEDIATELY AFTER BREAKFAST AND DINNER
     Route: 048
  18. PRASUGREL HYDROCHLORIDE [Concomitant]
     Active Substance: PRASUGREL HYDROCHLORIDE
     Indication: Product used for unknown indication
     Dosage: RIGHT AFTER BREAKFAST
     Route: 048
  19. VONOPRAZAN FUMARATE [Concomitant]
     Active Substance: VONOPRAZAN FUMARATE
     Indication: Product used for unknown indication
     Dosage: RIGHT AFTER BREAKFAST
     Route: 048
  20. ROSUVASTATIN [Concomitant]
     Active Substance: ROSUVASTATIN
     Indication: Product used for unknown indication
     Dosage: RIGHT AFTER BREAKFAST
     Route: 048
  21. SODIUM FERROUS CITRATE [Concomitant]
     Active Substance: SODIUM FERROUS CITRATE
     Indication: Product used for unknown indication
     Dosage: RIGHT AFTER BREAKFAST
     Route: 048
  22. BISOPROLOL FUMARATE [Concomitant]
     Active Substance: BISOPROLOL FUMARATE
     Indication: Product used for unknown indication
     Dosage: IMMEDIATELY AFTER DINNER
     Route: 048
  23. AMLODIPINE [Concomitant]
     Active Substance: AMLODIPINE BESYLATE
     Indication: Product used for unknown indication
     Dosage: IMMEDIATELY AFTER DINNER
     Route: 048
  24. LOPERAMIDE HYDROCHLORIDE [Concomitant]
     Active Substance: LOPERAMIDE HYDROCHLORIDE
     Indication: Product used for unknown indication
     Route: 048
  25. BIO-THREE [Concomitant]
     Active Substance: HERBALS
     Indication: Product used for unknown indication
     Dosage: RIGHT AFTER BREAKFAST, LUNCH AND DINNER
     Route: 048
  26. NICORANDIL [Concomitant]
     Active Substance: NICORANDIL
     Indication: Product used for unknown indication
     Dosage: RIGHT AFTER BREAKFAST, LUNCH AND DINNER
     Route: 048
  27. DIMETHICONE [Concomitant]
     Active Substance: DIMETHICONE
     Indication: Product used for unknown indication
     Dosage: RIGHT AFTER BREAKFAST, LUNCH AND DINNER
     Route: 048
  28. RIIDAI [Concomitant]
     Indication: Product used for unknown indication
     Dosage: RIGHT AFTER BREAKFAST, LUNCH AND DINNER
     Route: 048
  29. FERRIC CITRATE ANHYDROUS [Concomitant]
     Active Substance: FERRIC CITRATE ANHYDROUS
     Indication: Product used for unknown indication
     Dosage: IMMEDIATELY AFTER BREAKFAST AND DINNER
     Route: 048

REACTIONS (4)
  - Adrenal insufficiency [Unknown]
  - Diarrhoea [Unknown]
  - Hypertension [Recovered/Resolved]
  - Palmar-plantar erythrodysaesthesia syndrome [Recovered/Resolved]

NARRATIVE: CASE EVENT DATE: 20230101
